FAERS Safety Report 8942250 (Version 1)
Quarter: 2012Q4

REPORT INFORMATION
  Report Type: Spontaneous
  Country: US (occurrence: None)
  Receive Date: 20121129
  Receipt Date: 20121129
  Transmission Date: 20130627
  Serious: Yes (Hospitalization)
  Sender: FDA-Public Use
  Company Number: None

PATIENT
  Age: 73 Year
  Sex: Male
  Weight: 130.3 kg

DRUGS (1)
  1. BACLOFEN [Suspect]
     Indication: PAIN
     Dosage: 10MG TID PO
     Route: 048
     Dates: start: 20120919, end: 20120925

REACTIONS (4)
  - Mental status changes [None]
  - Dyskinesia [None]
  - Confusional state [None]
  - Staring [None]
